FAERS Safety Report 16038406 (Version 1)
Quarter: 2019Q1

REPORT INFORMATION
  Report Type: Spontaneous
  Country: GB (occurrence: GB)
  Receive Date: 20190305
  Receipt Date: 20190305
  Transmission Date: 20190418
  Serious: Yes (Other)
  Sender: FDA-Public Use
  Company Number: GB-ETHYPHARM-201900353

PATIENT
  Age: 48 Year
  Sex: Male

DRUGS (1)
  1. ESPRANOR [Suspect]
     Active Substance: BUPRENORPHINE HYDROCHLORIDE
     Indication: DRUG DEPENDENCE
     Route: 002

REACTIONS (1)
  - Tongue discomfort [Recovered/Resolved with Sequelae]

NARRATIVE: CASE EVENT DATE: 20190108
